FAERS Safety Report 8381905-6 (Version None)
Quarter: 2012Q2

REPORT INFORMATION
  Report Type: 
  Country: None (occurrence: None)
  Receive Date: 20120523
  Receipt Date: 20120523
  Transmission Date: 20120825
  Serious: Yes (Disabling, Other)
  Sender: FDA-Public Use
  Company Number: None

PATIENT
  Sex: Male
  Weight: 106.1417 kg

DRUGS (2)
  1. CLOZAPINE [Suspect]
     Indication: DEPRESSION
     Dosage: 200MG IN MORNING TWICE DAILY
  2. LITHIUM CARBONATE [Suspect]
     Indication: DEPRESSION
     Dosage: 300 MG 1 MORNING 1 EVENING TWICE DAILY
     Dates: start: 20111209

REACTIONS (10)
  - GASTROINTESTINAL DISORDER [None]
  - DIZZINESS [None]
  - VISUAL IMPAIRMENT [None]
  - AMNESIA [None]
  - TREMOR [None]
  - CONVULSION [None]
  - DYSGEUSIA [None]
  - SYNCOPE [None]
  - DIARRHOEA [None]
  - THYROID DISORDER [None]
